FAERS Safety Report 11631320 (Version 2)
Quarter: 2015Q4

REPORT INFORMATION
  Report Type: Report from Study
  Country: BR (occurrence: BR)
  Receive Date: 20151014
  Receipt Date: 20151030
  Transmission Date: 20160304
  Serious: Yes (Hospitalization)
  Sender: FDA-Public Use
  Company Number: PHHY2013BR042408

PATIENT
  Sex: Male
  Weight: 66 kg

DRUGS (1)
  1. FORASEQ [Suspect]
     Active Substance: BUDESONIDE\FORMOTEROL FUMARATE
     Indication: ASTHMA
     Dosage: 1 DF, Q12H (TREATMENT 1 AND TREATMENT 2)
     Route: 055

REACTIONS (3)
  - Influenza [Recovering/Resolving]
  - Device malfunction [Unknown]
  - Asthma [Recovering/Resolving]
